FAERS Safety Report 7772962-6 (Version None)
Quarter: 2011Q3

REPORT INFORMATION
  Report Type: 
  Country: None (occurrence: None)
  Receive Date: 20110922
  Receipt Date: 20110707
  Transmission Date: 20111222
  Serious: Yes (Hospitalization)
  Sender: FDA-Public Use
  Company Number: US-ASTRAZENECA-2010SE43919

PATIENT
  Age: 57 Year
  Sex: Male
  Weight: 72.6 kg

DRUGS (7)
  1. CRESTOR [Concomitant]
  2. VIT D [Concomitant]
  3. XANAX [Concomitant]
  4. SEROQUEL [Suspect]
     Route: 048
  5. NEXIUM [Concomitant]
  6. SEROQUEL [Suspect]
     Indication: BIPOLAR DISORDER
     Route: 048
     Dates: start: 20050101
  7. LOVAZA [Concomitant]

REACTIONS (7)
  - DIABETES MELLITUS [None]
  - THERAPEUTIC RESPONSE UNEXPECTED [None]
  - MALAISE [None]
  - POOR QUALITY SLEEP [None]
  - NAUSEA [None]
  - MANIA [None]
  - DRUG DOSE OMISSION [None]
